FAERS Safety Report 7189351-8 (Version None)
Quarter: 2010Q4

REPORT INFORMATION
  Report Type: 
  Country: None (occurrence: None)
  Receive Date: 20101222
  Receipt Date: 20100820
  Transmission Date: 20110411
  Serious: Yes (Hospitalization)
  Sender: FDA-Public Use
  Company Number: US-AMGEN-KDL424569

PATIENT

DRUGS (4)
  1. ENBREL [Suspect]
     Indication: RHEUMATOID ARTHRITIS
     Dosage: 50 MG, QWK
     Route: 058
  2. ENBREL [Suspect]
     Indication: PSORIATIC ARTHROPATHY
  3. ENBREL [Suspect]
     Indication: PSORIASIS
  4. METHOTREXATE [Concomitant]
     Dosage: .7 MG, UNK

REACTIONS (8)
  - ASTHMA [None]
  - CARTILAGE ATROPHY [None]
  - CELLULITIS [None]
  - CHEST DISCOMFORT [None]
  - IMPAIRED HEALING [None]
  - SINUSITIS [None]
  - TRIGGER FINGER [None]
  - WHEEZING [None]
